FAERS Safety Report 13790727 (Version 1)
Quarter: 2017Q3

REPORT INFORMATION
  Report Type: Spontaneous
  Country: US (occurrence: US)
  Receive Date: 20170725
  Receipt Date: 20170725
  Transmission Date: 20171127
  Serious: No
  Sender: FDA-Public Use
  Company Number: US-GALDERMA-US17002128

PATIENT
  Sex: Female

DRUGS (4)
  1. SEASONIQUE BIRTH CONTROL PILL [Concomitant]
     Indication: ACNE
  2. DIFFERIN GEL [Suspect]
     Active Substance: ADAPALENE
     Indication: ACNE
     Dosage: 0.1%
     Route: 061
  3. CLEAN AND CLEAR FACIAL WASH [Concomitant]
     Indication: PRODUCT USED FOR UNKNOWN INDICATION
  4. CLINIQUE FACIAL WASH [Concomitant]
     Indication: PRODUCT USED FOR UNKNOWN INDICATION

REACTIONS (2)
  - Acne [Unknown]
  - Drug ineffective [Unknown]
